FAERS Safety Report 23771738 (Version 1)
Quarter: 2024Q2

REPORT INFORMATION
  Report Type: Report from Study
  Country: CA (occurrence: CA)
  Receive Date: 20240423
  Receipt Date: 20240423
  Transmission Date: 20240716
  Serious: Yes (Hospitalization, Other)
  Sender: FDA-Public Use
  Company Number: CA-AUROBINDO-AUR-APL-2024-018202

PATIENT
  Age: 6 Year
  Sex: Female
  Weight: 17.8 kg

DRUGS (8)
  1. TADALAFIL [Suspect]
     Active Substance: TADALAFIL
     Indication: Pulmonary hypertension
     Dosage: UNK
     Route: 065
  2. TADALAFIL [Suspect]
     Active Substance: TADALAFIL
     Indication: Hypoplastic left heart syndrome
  3. TADALAFIL [Suspect]
     Active Substance: TADALAFIL
     Indication: Aortic stenosis
  4. TADALAFIL [Suspect]
     Active Substance: TADALAFIL
     Indication: Mitral valve stenosis
  5. AMBRISENTAN [Suspect]
     Active Substance: AMBRISENTAN
     Indication: Pulmonary hypertension
     Dosage: UNK
     Route: 065
  6. AMBRISENTAN [Suspect]
     Active Substance: AMBRISENTAN
     Indication: Hypoplastic left heart syndrome
  7. AMBRISENTAN [Suspect]
     Active Substance: AMBRISENTAN
     Indication: Aortic stenosis
  8. AMBRISENTAN [Suspect]
     Active Substance: AMBRISENTAN
     Indication: Mitral valve stenosis

REACTIONS (1)
  - Drug ineffective [Unknown]
